FAERS Safety Report 21089810 (Version 1)
Quarter: 2022Q3

REPORT INFORMATION
  Report Type: Spontaneous
  Country: DE (occurrence: DE)
  Receive Date: 20220715
  Receipt Date: 20220715
  Transmission Date: 20221027
  Serious: Yes (Congenital Anomaly)
  Sender: FDA-Public Use
  Company Number: DE-NOVARTISPH-NVSC2022DE155932

PATIENT
  Sex: Female

DRUGS (2)
  1. LAMOTRIGINE [Suspect]
     Active Substance: LAMOTRIGINE
     Indication: Foetal exposure during pregnancy
     Dosage: MATERNAL DOSE: 1200 MG, QD (BIS 200) STARTED FROM 24 JAN 2021 TO 28 JUN 2021
     Route: 064
  2. FOLIC ACID [Concomitant]
     Active Substance: FOLIC ACID
     Indication: Foetal exposure during pregnancy
     Dosage: MATERNAL DOSE: UNK, 0. - 22.1. GESTATIONAL WEEK, STARTED FROM 24 JAN 2021 TO 28 JUN 2021
     Route: 064

REACTIONS (3)
  - Spina bifida [Not Recovered/Not Resolved]
  - Arnold-Chiari malformation [Not Recovered/Not Resolved]
  - Foetal exposure during pregnancy [Unknown]
